FAERS Safety Report 16931985 (Version 1)
Quarter: 2019Q4

REPORT INFORMATION
  Report Type: Report from Study
  Country: US (occurrence: BR)
  Receive Date: 20191017
  Receipt Date: 20191017
  Transmission Date: 20200122
  Serious: Yes (Death, Other)
  Sender: FDA-Public Use
  Company Number: US-SUNOVION-2019SUN004450

PATIENT
  Sex: Female

DRUGS (3)
  1. INDACATEROL AND GLYCOPYRROLATE [Suspect]
     Active Substance: GLYCOPYRROLATE\INDACATEROL MALEATE
     Indication: LUNG DISORDER
     Dosage: UNK, QD
     Route: 065
  2. GLYCOPYRROLATE. [Suspect]
     Active Substance: GLYCOPYRROLATE
     Indication: LUNG DISORDER
     Dosage: UNK, QD
     Route: 065
  3. INDACATEROL [Suspect]
     Active Substance: INDACATEROL
     Indication: LUNG DISORDER
     Dosage: UNK, QD
     Route: 065

REACTIONS (2)
  - Death [Fatal]
  - Product use in unapproved indication [Unknown]

NARRATIVE: CASE EVENT DATE: 201909
